FAERS Safety Report 10142555 (Version 2)
Quarter: 2014Q3

REPORT INFORMATION
  Report Type: Spontaneous
  Country: IT (occurrence: IT)
  Receive Date: 20140430
  Receipt Date: 20140724
  Transmission Date: 20150326
  Serious: Yes (Hospitalization)
  Sender: FDA-Public Use
  Company Number: IT-BRISTOL-MYERS SQUIBB COMPANY-20664611

PATIENT
  Age: 76 Year
  Sex: Female

DRUGS (3)
  1. MODURETIC 5-50 [Concomitant]
     Active Substance: AMILORIDE HYDROCHLORIDE\HYDROCHLOROTHIAZIDE
  2. COUMADIN [Suspect]
     Active Substance: WARFARIN SODIUM
     Indication: MITRAL VALVE REPLACEMENT
     Dosage: 1DF=1UNIT
     Route: 048
     Dates: start: 20120101, end: 20130811
  3. LANOXIN [Concomitant]
     Active Substance: DIGOXIN

REACTIONS (5)
  - Melaena [Unknown]
  - Asthenia [Unknown]
  - Gastrointestinal haemorrhage [Unknown]
  - Nausea [Unknown]
  - Vomiting [Unknown]

NARRATIVE: CASE EVENT DATE: 20130811
